FAERS Safety Report 5382043-7 (Version None)
Quarter: 2007Q3

REPORT INFORMATION
  Report Type: 
  Country: None (occurrence: None)
  Receive Date: 20070705
  Receipt Date: 20070621
  Transmission Date: 20080115
  Serious: Yes (Life-Threatening, Hospitalization)
  Sender: FDA-Public Use
  Company Number: POMP-11105

PATIENT
  Age: 42 Week
  Sex: Female
  Weight: 7.02 kg

DRUGS (5)
  1. MYOZYME [Suspect]
     Indication: GLYCOGEN STORAGE DISEASE TYPE II
     Dosage: 20 MG/KG Q2WKS IV
     Route: 042
     Dates: start: 20070201
  2. PULMICORT [Concomitant]
  3. ALBUTEROL [Concomitant]
  4. CAPTOPRIL [Concomitant]
  5. PREVACID [Concomitant]

REACTIONS (3)
  - ATELECTASIS [None]
  - BRADYCARDIA [None]
  - RESPIRATORY ARREST [None]
